FAERS Safety Report 5242584-X (Version None)
Quarter: 2007Q1

REPORT INFORMATION
  Report Type: 
  Country: None (occurrence: None)
  Receive Date: 20070214
  Receipt Date: 20070206
  Transmission Date: 20070707
  Serious: Yes (Death)
  Sender: FDA-Public Use
  Company Number: 163-21880-06081405

PATIENT
  Age: 92 Year
  Sex: Male

DRUGS (6)
  1. REVLIMID [Suspect]
     Indication: MYELODYSPLASTIC SYNDROME
     Dosage: 5 MG, QD X 3 WEEKS Q 28 DAYS, ORAL
     Route: 048
     Dates: start: 20060621, end: 20060827
  2. ZOCOR [Concomitant]
  3. SYNTHROID [Concomitant]
  4. PROTONIX [Concomitant]
  5. MEGACE ES (MEGESTROL ACETATE) [Concomitant]
  6. LORTAB [Concomitant]

REACTIONS (1)
  - DEATH [None]
